FAERS Safety Report 4590463-3 (Version None)
Quarter: 2005Q1

REPORT INFORMATION
  Report Type: 
  Country: None (occurrence: None)
  Receive Date: 20050224
  Receipt Date: 20050127
  Transmission Date: 20050727
  Serious: Yes (Other)
  Sender: FDA-Public Use
  Company Number: JP-BRISTOL-MYERS SQUIBB COMPANY-12860078

PATIENT
  Age: 17 Year
  Sex: Female

DRUGS (1)
  1. IFOMIDE [Suspect]
     Indication: BONE SARCOMA
     Route: 041
     Dates: start: 20040710, end: 20040710

REACTIONS (2)
  - ENCEPHALOPATHY [None]
  - METABOLIC ACIDOSIS [None]
